FAERS Safety Report 8915897 (Version 1)
Quarter: 2012Q4

REPORT INFORMATION
  Report Type: 
  Country: US (occurrence: US)
  Receive Date: 20121119
  Receipt Date: 20121119
  Transmission Date: 20130627
  Serious: No
  Sender: FDA-Public Use
  Company Number: US-PFIZER INC-2012288124

PATIENT
  Age: 80 Year
  Sex: Female
  Weight: 63.49 kg

DRUGS (2)
  1. LYRICA [Suspect]
     Indication: NUMBNESS
     Dosage: 50 mg, daily
     Route: 048
     Dates: start: 20121113, end: 20121115
  2. RENVELA [Concomitant]
     Dosage: 800 mg, 3x/day

REACTIONS (3)
  - Gait disturbance [Unknown]
  - Tremor [Unknown]
  - Somnolence [Unknown]
